FAERS Safety Report 16930267 (Version 1)
Quarter: 2019Q4

REPORT INFORMATION
  Report Type: Spontaneous
  Country: RU (occurrence: RU)
  Receive Date: 20191017
  Receipt Date: 20191017
  Transmission Date: 20200122
  Serious: Yes (Other)
  Sender: FDA-Public Use
  Company Number: RU-JNJFOC-20191019200

PATIENT
  Age: 68 Year
  Sex: Male

DRUGS (2)
  1. XARELTO [Suspect]
     Active Substance: RIVAROXABAN
     Indication: PULMONARY EMBOLISM
  2. XARELTO [Suspect]
     Active Substance: RIVAROXABAN
     Indication: DEEP VEIN THROMBOSIS
     Dosage: 15 MG, BID
     Route: 048
     Dates: start: 20190929, end: 20191002

REACTIONS (1)
  - Platelet count increased [Recovering/Resolving]

NARRATIVE: CASE EVENT DATE: 201910
